FAERS Safety Report 9501722 (Version 7)
Quarter: 2014Q1

REPORT INFORMATION
  Report Type: Spontaneous
  Country: JP (occurrence: JP)
  Receive Date: 20130905
  Receipt Date: 20140328
  Transmission Date: 20141002
  Serious: Yes (Disabling, Other)
  Sender: FDA-Public Use
  Company Number: JP-GILEAD-2013-0077652

PATIENT
  Age: 40 Year
  Sex: Male

DRUGS (2)
  1. HEPSERA [Suspect]
     Indication: CHRONIC HEPATITIS B
     Dosage: 10 MG, QD
     Route: 048
     Dates: start: 200505, end: 20130613
  2. ZEFIX [Suspect]
     Indication: CHRONIC HEPATITIS B
     Dosage: 100 MG, QD
     Route: 048
     Dates: start: 200405

REACTIONS (7)
  - Fanconi syndrome acquired [Recovering/Resolving]
  - Osteomalacia [Recovering/Resolving]
  - Liver disorder [Recovered/Resolved]
  - Hepatitis [Unknown]
  - Back pain [Unknown]
  - Proteinuria [Unknown]
  - Glucose urine present [Unknown]
